FAERS Safety Report 5446012-0 (Version None)
Quarter: 2007Q3

REPORT INFORMATION
  Report Type: 
  Country: None (occurrence: None)
  Receive Date: 20070907
  Receipt Date: 20070829
  Transmission Date: 20080115
  Serious: Yes (Hospitalization)
  Sender: FDA-Public Use
  Company Number: US-JNJFOC-20070805758

PATIENT
  Sex: Male
  Weight: 79.38 kg

DRUGS (18)
  1. GEODON [Suspect]
     Route: 048
  2. GEODON [Suspect]
     Route: 048
  3. GEODON [Suspect]
     Indication: SCHIZOPHRENIA
     Route: 048
  4. GEODON [Suspect]
     Route: 048
  5. GEODON [Suspect]
     Route: 048
  6. GEODON [Suspect]
     Route: 048
  7. ZYPREXA [Concomitant]
     Route: 048
  8. ZYPREXA [Concomitant]
     Route: 048
  9. ZYPREXA [Concomitant]
     Route: 048
  10. ZYPREXA [Concomitant]
     Route: 048
  11. ZYPREXA [Concomitant]
     Indication: SCHIZOPHRENIA
     Route: 048
  12. RISPERDAL [Concomitant]
     Route: 048
  13. RISPERDAL [Concomitant]
     Route: 048
  14. RISPERDAL [Concomitant]
     Route: 048
  15. RISPERDAL [Concomitant]
     Indication: SCHIZOPHRENIA
     Route: 048
  16. ATIVAN [Concomitant]
     Route: 048
  17. ATIVAN [Concomitant]
     Route: 048
  18. ATIVAN [Concomitant]
     Indication: ANXIETY
     Route: 048

REACTIONS (1)
  - EXTRAPYRAMIDAL DISORDER [None]
